FAERS Safety Report 5541685-6 (Version None)
Quarter: 2007Q4

REPORT INFORMATION
  Report Type: 
  Country: None (occurrence: None)
  Receive Date: 20071210
  Receipt Date: 20071203
  Transmission Date: 20080405
  Serious: Yes (Hospitalization)
  Sender: FDA-Public Use
  Company Number: PHEH2007US15389

PATIENT
  Age: 59 Year
  Sex: Female

DRUGS (3)
  1. ZOMETA [Suspect]
     Indication: MULTIPLE MYELOMA
     Dates: start: 20060101
  2. REVLIMID [Concomitant]
  3. DEXAMETHASONE TAB [Concomitant]

REACTIONS (6)
  - BIOPSY KIDNEY ABNORMAL [None]
  - BLOOD CREATININE INCREASED [None]
  - DIALYSIS [None]
  - DIARRHOEA [None]
  - NEPHRITIS INTERSTITIAL [None]
  - RENAL FAILURE ACUTE [None]
